FAERS Safety Report 8617546 (Version 5)
Quarter: 2013Q2

REPORT INFORMATION
  Report Type: Report from Study
  Country: JP (occurrence: JP)
  Receive Date: 20120615
  Receipt Date: 20130501
  Transmission Date: 20140414
  Serious: Yes (Hospitalization, Other)
  Sender: FDA-Public Use
  Company Number: JP-ROCHE-1077462

PATIENT
  Age: 75 Year
  Sex: Male
  Weight: 55.07 kg

DRUGS (10)
  1. OMALIZUMAB [Suspect]
     Indication: ASTHMA
     Route: 058
     Dates: start: 20111025
  2. OMALIZUMAB [Suspect]
     Route: 058
     Dates: start: 20110104
  3. OMALIZUMAB [Suspect]
     Route: 058
     Dates: start: 20120118
  4. OMALIZUMAB [Suspect]
     Route: 058
     Dates: start: 20120216, end: 20120301
  5. ADVAIR [Concomitant]
     Route: 065
     Dates: start: 20111019
  6. PREDNISOLONE [Concomitant]
     Route: 065
     Dates: start: 20110419
  7. FAMOTIDINE [Concomitant]
     Route: 065
     Dates: start: 20110311
  8. MUCODYNE [Concomitant]
     Route: 065
     Dates: start: 20110511
  9. WARFARIN POTASSIUM [Concomitant]
     Route: 065
     Dates: start: 20111011
  10. ALLEGRA [Concomitant]
     Route: 065
     Dates: start: 20110619

REACTIONS (4)
  - Infectious pleural effusion [Recovered/Resolved]
  - C-reactive protein decreased [Unknown]
  - Nasopharyngitis [Unknown]
  - Spinal compression fracture [Not Recovered/Not Resolved]
